FAERS Safety Report 4633973-2 (Version None)
Quarter: 2005Q2

REPORT INFORMATION
  Report Type: 
  Country: None (occurrence: None)
  Receive Date: 20050412
  Receipt Date: 20050227
  Transmission Date: 20051028
  Serious: Yes (Death, Hospitalization)
  Sender: FDA-Public Use
  Company Number: 2005S1000827

PATIENT
  Age: 83 Year
  Sex: Female

DRUGS (4)
  1. CLOZAPINE [Suspect]
     Indication: SCHIZOPHRENIA
     Dosage: 75 MG; HS; PO
     Route: 048
     Dates: start: 20020101, end: 20050208
  2. LORAZEPAM [Concomitant]
  3. MORPHINE [Concomitant]
  4. ACETAMINOPHEN [Concomitant]

REACTIONS (1)
  - DEATH [None]
